FAERS Safety Report 9424706 (Version 2)
Quarter: 2013Q3

REPORT INFORMATION
  Report Type: Spontaneous
  Country: US (occurrence: US)
  Receive Date: 20130725
  Receipt Date: 20130725
  Transmission Date: 20140515
  Serious: Yes (Other)
  Sender: FDA-Public Use
  Company Number: JPI-P-033672

PATIENT
  Age: 29 Year
  Sex: Male
  Weight: 74.84 kg

DRUGS (1)
  1. XYREM [Suspect]
     Indication: CATAPLEXY
     Route: 048
     Dates: start: 2005

REACTIONS (1)
  - Intervertebral disc protrusion [None]
